FAERS Safety Report 8268252-8 (Version None)
Quarter: 2012Q2

REPORT INFORMATION
  Report Type: 
  Country: None (occurrence: None)
  Receive Date: 20120409
  Receipt Date: 20120327
  Transmission Date: 20120825
  Serious: Yes (Other)
  Sender: FDA-Public Use
  Company Number: US-ELI_LILLY_AND_COMPANY-US201109004170

PATIENT
  Sex: Female

DRUGS (2)
  1. FORTEO [Suspect]
     Indication: OSTEOPOROSIS
     Dosage: 20 UG, QD
     Dates: start: 20110801
  2. FORTEO [Suspect]
     Dosage: 20 UG, QD
     Dates: start: 20110801

REACTIONS (4)
  - FOOT FRACTURE [None]
  - PAIN IN EXTREMITY [None]
  - MUSCLE SPASMS [None]
  - DEVICE DISLOCATION [None]
